FAERS Safety Report 13880182 (Version 3)
Quarter: 2019Q1

REPORT INFORMATION
  Report Type: Report from Study
  Country: None (occurrence: US)
  Receive Date: 20170818
  Receipt Date: 20190120
  Transmission Date: 20190417
  Serious: Yes (Hospitalization, Disabling, Other)
  Sender: FDA-Public Use
  Company Number: US-ABBVIE-17K-163-2073060-00

PATIENT
  Age: 87 Year
  Sex: Male
  Weight: 65.38 kg

DRUGS (10)
  1. LIALDA [Concomitant]
     Active Substance: MESALAMINE
     Indication: COLITIS ULCERATIVE
  2. CILOSTAZOL. [Concomitant]
     Active Substance: CILOSTAZOL
     Indication: POOR PERIPHERAL CIRCULATION
  3. GABAPENTIN. [Concomitant]
     Active Substance: GABAPENTIN
     Indication: HERPES ZOSTER
  4. LISINOPRIL. [Concomitant]
     Active Substance: LISINOPRIL
     Indication: HYPERTENSION
  5. OMEPRAZOLE. [Concomitant]
     Active Substance: OMEPRAZOLE
     Indication: OESOPHAGEAL ULCER
  6. EYLEA [Concomitant]
     Active Substance: AFLIBERCEPT
     Indication: MACULAR DEGENERATION
     Route: 050
  7. AVASTIN [Concomitant]
     Active Substance: BEVACIZUMAB
     Indication: MACULAR DEGENERATION
     Route: 050
  8. CLOPIDOGREL [Concomitant]
     Active Substance: CLOPIDOGREL BISULFATE
     Indication: POOR PERIPHERAL CIRCULATION
  9. HUMIRA [Suspect]
     Active Substance: ADALIMUMAB
     Indication: COLITIS ULCERATIVE
     Route: 058
     Dates: start: 201612, end: 2018
  10. HUMIRA [Suspect]
     Active Substance: ADALIMUMAB
     Route: 058
     Dates: start: 2018, end: 201901

REACTIONS (10)
  - Bone pain [Recovered/Resolved]
  - Blindness transient [Recovered/Resolved]
  - Withdrawal syndrome [Recovered/Resolved]
  - Wound infection staphylococcal [Not Recovered/Not Resolved]
  - Skin laceration [Recovered/Resolved]
  - Insomnia [Recovered/Resolved]
  - Injection site pain [Not Recovered/Not Resolved]
  - Blindness [Not Recovered/Not Resolved]
  - Influenza like illness [Recovered/Resolved]
  - Mobility decreased [Recovered/Resolved]

NARRATIVE: CASE EVENT DATE: 201612
